FAERS Safety Report 8243042-0 (Version None)
Quarter: 2012Q1

REPORT INFORMATION
  Report Type: 
  Country: None (occurrence: None)
  Receive Date: 20120329
  Receipt Date: 20120327
  Transmission Date: 20120608
  Serious: Yes (Other)
  Sender: FDA-Public Use
  Company Number: JP-PFIZER INC-2012077804

PATIENT
  Age: 45 Year
  Sex: Female

DRUGS (5)
  1. ALPRAZOLAM [Suspect]
     Dosage: UNK
     Route: 048
  2. TRIAZOLAM [Suspect]
     Dosage: UNK
     Route: 048
  3. PAROXETINE [Suspect]
     Dosage: UNK
  4. BROTIZOLAM [Suspect]
     Dosage: UNK
  5. CLONAZEPAM [Suspect]
     Dosage: UNK

REACTIONS (1)
  - BLEPHAROSPASM [None]
